FAERS Safety Report 21851721 (Version 3)
Quarter: 2023Q1

REPORT INFORMATION
  Report Type: Spontaneous
  Country: FR (occurrence: FR)
  Receive Date: 20230112
  Receipt Date: 20230124
  Transmission Date: 20230418
  Serious: Yes (Other)
  Sender: FDA-Public Use
  Company Number: None

PATIENT
  Age: 82 Year
  Sex: Male
  Weight: 67 kg

DRUGS (2)
  1. AVASTIN [Suspect]
     Active Substance: BEVACIZUMAB
     Indication: Adenocarcinoma
     Dosage: 500 MG
     Route: 042
     Dates: start: 20221024, end: 20221114
  2. XELODA [Suspect]
     Active Substance: CAPECITABINE
     Indication: Adenocarcinoma
     Dosage: 1300 MG MORNING AND EVENING
     Route: 048
     Dates: start: 20220713

REACTIONS (3)
  - Condition aggravated [Unknown]
  - Dysarthria [Unknown]
  - Memory impairment [Unknown]

NARRATIVE: CASE EVENT DATE: 20221117
